FAERS Safety Report 7395327-8 (Version None)
Quarter: 2011Q2

REPORT INFORMATION
  Report Type: 
  Country: None (occurrence: None)
  Receive Date: 20110405
  Receipt Date: 20110328
  Transmission Date: 20111010
  Serious: Yes (Other)
  Sender: FDA-Public Use
  Company Number: CA-PFIZER INC-2011027288

PATIENT
  Age: 14 Year
  Sex: Female
  Weight: 52.6 kg

DRUGS (3)
  1. ENALAPRIL MALEATE [Concomitant]
     Indication: BLOOD PRESSURE INCREASED
     Dosage: 5 MG, 2X/DAY
  2. DEPO-PROVERA [Suspect]
     Indication: OFF LABEL USE
     Dosage: ONCE
     Dates: start: 20101220, end: 20101220
  3. DEPO-PROVERA [Suspect]
     Indication: MENSTRUAL DISCOMFORT

REACTIONS (1)
  - CONVULSION [None]
